FAERS Safety Report 16566274 (Version 1)
Quarter: 2019Q3

REPORT INFORMATION
  Report Type: Spontaneous
  Country: RO (occurrence: RO)
  Receive Date: 20190712
  Receipt Date: 20190712
  Transmission Date: 20191004
  Serious: Yes (Other)
  Sender: FDA-Public Use
  Company Number: RO-ASTRAZENECA-2019SE99055

PATIENT
  Age: 52 Year
  Sex: Male

DRUGS (2)
  1. BRILIQUE [Suspect]
     Active Substance: TICAGRELOR
     Indication: ANGINA UNSTABLE
     Route: 048
  2. ASA [Concomitant]
     Active Substance: ASPIRIN
     Indication: ANGINA UNSTABLE

REACTIONS (5)
  - Factor V Leiden mutation [Unknown]
  - Hypercoagulation [Unknown]
  - Hyperlipidaemia [Unknown]
  - Antiphospholipid syndrome [Unknown]
  - Vascular stent stenosis [Unknown]
